FAERS Safety Report 12251985 (Version 1)
Quarter: 2016Q2

REPORT INFORMATION
  Report Type: Spontaneous
  Country: US (occurrence: US)
  Receive Date: 20160411
  Receipt Date: 20160411
  Transmission Date: 20160815
  Serious: Yes (Other)
  Sender: FDA-Public Use
  Company Number: US-BEH-2016060976

PATIENT
  Sex: Female
  Weight: 103 kg

DRUGS (22)
  1. LIDOCAINE/PRILOCAINE [Concomitant]
  2. METHOTREXATE [Concomitant]
     Active Substance: METHOTREXATE
  3. TRICOR [Concomitant]
     Active Substance: FENOFIBRATE
  4. VALIUM [Concomitant]
     Active Substance: DIAZEPAM
  5. HIZENTRA [Suspect]
     Active Substance: HUMAN IMMUNOGLOBULIN G
     Dosage: STRENGTH OF DOSAGE FORM: 2GM, 4GM
     Route: 058
  6. FLEXERIL [Concomitant]
     Active Substance: CYCLOBENZAPRINE HYDROCHLORIDE
  7. EVOXAC [Concomitant]
     Active Substance: CEVIMELINE HYDROCHLORIDE
  8. ACETAMINOPHEN. [Concomitant]
     Active Substance: ACETAMINOPHEN
  9. DIPHENHYDRAMINE. [Concomitant]
     Active Substance: DIPHENHYDRAMINE
  10. ZITHROMAX [Concomitant]
     Active Substance: AZITHROMYCIN DIHYDRATE
  11. CALTRATE-600 WITH VIT D [Concomitant]
  12. RESTASIS [Concomitant]
     Active Substance: CYCLOSPORINE
  13. MILK OF MAGNESIA SUSPENSION [Concomitant]
  14. LYRICA [Concomitant]
     Active Substance: PREGABALIN
  15. FOLIC ACID. [Concomitant]
     Active Substance: FOLIC ACID
  16. HIZENTRA [Suspect]
     Active Substance: HUMAN IMMUNOGLOBULIN G
     Indication: HYPOGAMMAGLOBULINAEMIA
     Dosage: STRENGTH OF DOSAGE FORM: 2GM, 4GM
     Route: 058
  17. EPIPEN [Concomitant]
     Active Substance: EPINEPHRINE
  18. MAXALT [Concomitant]
     Active Substance: RIZATRIPTAN BENZOATE
  19. PROVENTIL [Concomitant]
     Active Substance: ALBUTEROL
  20. TRAZODONE [Concomitant]
     Active Substance: TRAZODONE HYDROCHLORIDE
  21. NEXIUM [Concomitant]
     Active Substance: ESOMEPRAZOLE MAGNESIUM
  22. IBUPROFEN. [Concomitant]
     Active Substance: IBUPROFEN

REACTIONS (1)
  - Tooth abscess [Unknown]
